FAERS Safety Report 4883291-2 (Version None)
Quarter: 2006Q1

REPORT INFORMATION
  Report Type: 
  Country: None (occurrence: None)
  Receive Date: 20060117
  Receipt Date: 20060117
  Transmission Date: 20060701
  Serious: Yes (Hospitalization)
  Sender: FDA-Public Use
  Company Number: None

PATIENT
  Age: 80 Year
  Sex: Male
  Weight: 88.5 kg

DRUGS (8)
  1. COLCHICINE 0.6 MG [Suspect]
     Indication: GOUT
     Dates: start: 20050620, end: 20060112
  2. METOPROLOL [Concomitant]
  3. SERTRALINE [Concomitant]
  4. BUMEX [Concomitant]
  5. OMEPRAZOLE [Concomitant]
  6. GLYBURIDE [Concomitant]
  7. GEMFIBROZIL [Concomitant]
  8. SYNTHROID [Concomitant]

REACTIONS (3)
  - INFECTION IN AN IMMUNOCOMPROMISED HOST [None]
  - PERIRECTAL ABSCESS [None]
  - WHITE BLOOD CELL COUNT DECREASED [None]
